FAERS Safety Report 7504714-6 (Version None)
Quarter: 2011Q2

REPORT INFORMATION
  Report Type: 
  Country: None (occurrence: None)
  Receive Date: 20110525
  Receipt Date: 20110518
  Transmission Date: 20111010
  Serious: Yes (Other)
  Sender: FDA-Public Use
  Company Number: JP-MERCK-1105USA03112

PATIENT
  Age: 87 Year
  Sex: Male

DRUGS (4)
  1. GLICLAZIDE [Concomitant]
     Indication: DIABETES MELLITUS
     Route: 048
     Dates: start: 20070101
  2. JANUVIA [Suspect]
     Route: 048
     Dates: start: 20110418, end: 20110517
  3. BENIDIPINE HYDROCHLORIDE [Concomitant]
     Indication: HYPERTENSION
     Route: 048
     Dates: start: 20090101
  4. JANUVIA [Suspect]
     Indication: DIABETES MELLITUS
     Route: 048
     Dates: start: 20110120, end: 20110417

REACTIONS (1)
  - OEDEMA PERIPHERAL [None]
